FAERS Safety Report 14009697 (Version 5)
Quarter: 2019Q1

REPORT INFORMATION
  Report Type: Spontaneous
  Country: JP (occurrence: JP)
  Receive Date: 20170925
  Receipt Date: 20190111
  Transmission Date: 20190417
  Serious: Yes (Hospitalization, Other)
  Sender: FDA-Public Use
  Company Number: JP-PFIZER INC-2017411376

PATIENT
  Age: 66 Year
  Sex: Male

DRUGS (7)
  1. LYRICA [Suspect]
     Active Substance: PREGABALIN
     Indication: NEURALGIA
     Dosage: 25 MG, DAILY
     Route: 048
     Dates: start: 20170317, end: 20170320
  2. TRAMCET [Suspect]
     Active Substance: ACETAMINOPHEN\TRAMADOL
     Indication: PAIN
     Dosage: 1 DF, DAILY
     Route: 048
     Dates: start: 20170807, end: 20170813
  3. LYRICA [Suspect]
     Active Substance: PREGABALIN
     Dosage: 50 MG, DAILY
     Route: 048
     Dates: start: 20170321, end: 20170324
  4. LYRICA [Suspect]
     Active Substance: PREGABALIN
     Dosage: 75 MG, DAILY
     Route: 048
     Dates: start: 20170325, end: 20170406
  5. LYRICA [Suspect]
     Active Substance: PREGABALIN
     Dosage: 175 MG, DAILY
     Route: 048
     Dates: start: 20170407, end: 20170810
  6. CELECOX [Concomitant]
     Active Substance: CELECOXIB
     Indication: PAIN
     Dosage: 200 MG, DAILY
     Route: 048
     Dates: start: 20170807, end: 20170809
  7. LYRICA [Suspect]
     Active Substance: PREGABALIN
     Dosage: 100 MG, DAILY
     Route: 048
     Dates: start: 20170811, end: 20170816

REACTIONS (6)
  - Drug-induced liver injury [Recovered/Resolved]
  - Nausea [Recovered/Resolved]
  - Allergy test positive [Unknown]
  - Abdominal pain upper [Unknown]
  - Vomiting [Unknown]
  - Wound infection [Recovered/Resolved]

NARRATIVE: CASE EVENT DATE: 20170813
